FAERS Safety Report 12993838 (Version 4)
Quarter: 2018Q1

REPORT INFORMATION
  Report Type: Spontaneous
  Country: US (occurrence: US)
  Receive Date: 20161202
  Receipt Date: 20180311
  Transmission Date: 20180508
  Serious: No
  Sender: FDA-Public Use
  Company Number: US-JNJFOC-20161009083

PATIENT
  Age: 18 Year
  Sex: Male

DRUGS (3)
  1. RISPERIDONE. [Suspect]
     Active Substance: RISPERIDONE
     Indication: PRODUCT USED FOR UNKNOWN INDICATION
     Route: 048
     Dates: start: 19990706, end: 20131202
  2. RISPERDAL [Suspect]
     Active Substance: RISPERIDONE
     Indication: AUTISM SPECTRUM DISORDER
     Route: 048
     Dates: start: 20091229, end: 20131202
  3. RISPERDAL [Suspect]
     Active Substance: RISPERIDONE
     Indication: AUTISM SPECTRUM DISORDER
     Dosage: VARYING FREQUENCIES (UNSPECIFIED FREQUENCY/0.5 ML TWO TIMES A DAY/ 0.5 ML IN AM AND 01ML AT BEDTIME)
     Route: 048
     Dates: start: 19990706, end: 20091203

REACTIONS (5)
  - Obesity [Unknown]
  - Gynaecomastia [Unknown]
  - Off label use [Unknown]
  - Drug prescribing error [Unknown]
  - Emotional distress [Unknown]

NARRATIVE: CASE EVENT DATE: 20091229
